FAERS Safety Report 6973470-2 (Version None)
Quarter: 2010Q3

REPORT INFORMATION
  Report Type: 
  Country: None (occurrence: None)
  Receive Date: 20100909
  Receipt Date: 20100810
  Transmission Date: 20110219
  Serious: No
  Sender: FDA-Public Use
  Company Number: US-PFIZER INC-2010101100

PATIENT
  Sex: Female
  Weight: 57 kg

DRUGS (4)
  1. LIPITOR [Suspect]
     Indication: BLOOD CHOLESTEROL
     Dosage: 20 MG, DAILY
     Dates: start: 20100806, end: 20100801
  2. ZOLOFT [Concomitant]
     Indication: MENTAL DISORDER
     Dosage: UNK
  3. TRAZODONE [Concomitant]
     Indication: SLEEP DISORDER
     Dosage: UNK
  4. NEXIUM [Concomitant]
     Indication: GASTRIC DISORDER
     Dosage: UNK

REACTIONS (5)
  - BACK PAIN [None]
  - COGNITIVE DISORDER [None]
  - FATIGUE [None]
  - HEAD DISCOMFORT [None]
  - TINNITUS [None]
